FAERS Safety Report 17260447 (Version 4)
Quarter: 2020Q1

REPORT INFORMATION
  Report Type: Spontaneous
  Country: BR (occurrence: BR)
  Receive Date: 20200112
  Receipt Date: 20200219
  Transmission Date: 20200409
  Serious: Yes (Other)
  Sender: FDA-Public Use
  Company Number: BR-AMGEN-BRASP2019213129

PATIENT
  Age: 60 Year
  Sex: Female
  Weight: 72 kg

DRUGS (1)
  1. ENBREL [Suspect]
     Active Substance: ETANERCEPT
     Indication: RHEUMATOID ARTHRITIS
     Dosage: 1 DOSAGE FORM, WEEKLY
     Route: 065
     Dates: start: 2011, end: 2015

REACTIONS (8)
  - Blood cholesterol increased [Recovered/Resolved]
  - Hypertension [Recovered/Resolved]
  - Diabetes mellitus [Recovered/Resolved]
  - Hepatic steatosis [Recovered/Resolved]
  - Gastrointestinal disorder [Recovered/Resolved]
  - Thyroid disorder [Recovered/Resolved]
  - Drug ineffective [Recovered/Resolved]
  - Blood triglycerides increased [Recovered/Resolved]

NARRATIVE: CASE EVENT DATE: 2015
